FAERS Safety Report 25183959 (Version 1)
Quarter: 2025Q2

REPORT INFORMATION
  Report Type: Spontaneous
  Country: US (occurrence: None)
  Receive Date: 20250409
  Receipt Date: 20250409
  Transmission Date: 20250716
  Serious: No
  Sender: FDA-CTU
  Company Number: None

PATIENT
  Age: 40 Year
  Sex: Female
  Weight: 93 kg

DRUGS (1)
  1. IRON DEXTRAN [Suspect]
     Active Substance: IRON DEXTRAN
     Indication: Iron deficiency anaemia
     Route: 042
     Dates: start: 20241031, end: 20241031

REACTIONS (6)
  - Anaphylactic reaction [None]
  - Bradycardia [None]
  - Hypotension [None]
  - Nausea [None]
  - Anxiety [None]
  - Unresponsive to stimuli [None]

NARRATIVE: CASE EVENT DATE: 20241031
